FAERS Safety Report 14153258 (Version 1)
Quarter: 2017Q4

REPORT INFORMATION
  Report Type: Report from Study
  Country: DE (occurrence: DE)
  Receive Date: 20171102
  Receipt Date: 20171102
  Transmission Date: 20180321
  Serious: Yes (Death, Other)
  Sender: FDA-Public Use
  Company Number: DE-ROCHE-1954781

PATIENT

DRUGS (6)
  1. HEPARIN [Suspect]
     Active Substance: HEPARIN SODIUM
     Dosage: BY 1000 IU/H TO BE GIVEN FOR }= 24 HOURS
     Route: 042
  2. ALTEPLASE. [Suspect]
     Active Substance: ALTEPLASE
     Indication: ACUTE MYOCARDIAL INFARCTION
     Dosage: BOLUS
     Route: 042
  3. ASPIRIN. [Suspect]
     Active Substance: ASPIRIN
     Indication: ACUTE MYOCARDIAL INFARCTION
     Route: 065
  4. HEPARIN [Suspect]
     Active Substance: HEPARIN SODIUM
     Indication: ACUTE MYOCARDIAL INFARCTION
     Route: 042
  5. ALTEPLASE. [Suspect]
     Active Substance: ALTEPLASE
     Dosage: OVER 30 MINUTES (MAXIMUM: 50 MG)
     Route: 042
  6. ALTEPLASE. [Suspect]
     Active Substance: ALTEPLASE
     Dosage: KG OVER 60 MINUTES (MAXIMUM: 35 MG)
     Route: 042

REACTIONS (5)
  - Cardiac failure congestive [Unknown]
  - Death [Fatal]
  - Haemorrhage [Unknown]
  - Cerebrovascular accident [Unknown]
  - Shock [Unknown]
